FAERS Safety Report 7244383 (Version 4)
Quarter: 2020Q2

REPORT INFORMATION
  Report Type: Spontaneous
  Country: FR (occurrence: FR)
  Receive Date: 20100113
  Receipt Date: 20200401
  Transmission Date: 20200714
  Serious: Yes (Other)
  Sender: FDA-Public Use
  Company Number: FR-JNJFOC-20100103035

PATIENT
  Age: 9 Year
  Sex: Male

DRUGS (7)
  1. EPITOMAX [Suspect]
     Active Substance: TOPIRAMATE
     Route: 048
     Dates: start: 20090828
  2. EPITOMAX [Suspect]
     Active Substance: TOPIRAMATE
     Indication: BEHAVIOUR DISORDER
     Route: 048
     Dates: start: 20090820
  3. EPITOMAX [Suspect]
     Active Substance: TOPIRAMATE
     Route: 048
     Dates: start: 20090903
  4. EPITOMAX [Suspect]
     Active Substance: TOPIRAMATE
     Route: 048
     Dates: start: 20090917
  5. SERETIDE [Concomitant]
     Active Substance: FLUTICASONE PROPIONATE\SALMETEROL XINAFOATE
  6. EPITOMAX [Suspect]
     Active Substance: TOPIRAMATE
     Route: 048
     Dates: start: 20091104, end: 20091216
  7. GENOTONORM [Concomitant]
     Active Substance: SOMATROPIN
     Dates: start: 200802

REACTIONS (2)
  - Neutropenia [Recovered/Resolved]
  - Off label use [Recovered/Resolved]

NARRATIVE: CASE EVENT DATE: 200908
